FAERS Safety Report 20110468 (Version 1)
Quarter: 2021Q4

REPORT INFORMATION
  Report Type: Spontaneous
  Country: US (occurrence: US)
  Receive Date: 20211124
  Receipt Date: 20211124
  Transmission Date: 20220303
  Serious: Yes (Other)
  Sender: FDA-Public Use
  Company Number: US-NOVOPROD-806434

PATIENT
  Age: 78 Year
  Sex: Male

DRUGS (2)
  1. TERBINAFINE [Concomitant]
     Active Substance: TERBINAFINE
     Indication: Product used for unknown indication
     Dosage: UNK
     Route: 065
  2. NOVOLOG [Suspect]
     Active Substance: INSULIN ASPART
     Indication: Type 2 diabetes mellitus
     Dosage: 10 IU, BID (10 UNITS BEFORE LUNCH AND 10 UNITS BEFORE BED; SLIDING SCALE)
     Route: 058
     Dates: start: 2019

REACTIONS (4)
  - Shock hypoglycaemic [Recovered/Resolved]
  - Hypoglycaemic unconsciousness [Recovered/Resolved]
  - Blood glucose increased [Recovered/Resolved]
  - Device breakage [Not Recovered/Not Resolved]

NARRATIVE: CASE EVENT DATE: 20210419
